FAERS Safety Report 4621526-1 (Version None)
Quarter: 2005Q1

REPORT INFORMATION
  Report Type: 
  Country: None (occurrence: None)
  Receive Date: 20050328
  Receipt Date: 20040604
  Transmission Date: 20050727
  Serious: Yes (Hospitalization)
  Sender: FDA-Public Use
  Company Number: 8169

PATIENT
  Age: 80 Year
  Sex: Female

DRUGS (3)
  1. AMIODARONE [Suspect]
     Indication: VENTRICULAR ARRHYTHMIA
     Dosage: 200 MG
  2. DIPYRAMIDOLE [Concomitant]
  3. NITROGLYCERIN [Concomitant]

REACTIONS (4)
  - HEPATIC FIBROSIS [None]
  - HEPATIC STEATOSIS [None]
  - HEPATITIS [None]
  - HEPATOTOXICITY [None]
